FAERS Safety Report 4317624-2 (Version None)
Quarter: 2004Q1

REPORT INFORMATION
  Report Type: 
  Country: None (occurrence: None)
  Receive Date: 20040315
  Receipt Date: 20040303
  Transmission Date: 20041129
  Serious: Yes (Hospitalization)
  Sender: FDA-Public Use
  Company Number: JP-BRISTOL-MYERS SQUIBB COMPANY-12525390

PATIENT
  Age: 63 Year
  Sex: Female

DRUGS (4)
  1. TAXOL [Suspect]
     Indication: BREAST CANCER
     Route: 042
     Dates: start: 20040220, end: 20040227
  2. RESTAMIN [Concomitant]
     Route: 048
  3. ZANTAC [Concomitant]
     Route: 042
  4. DECADRON [Concomitant]
     Route: 042

REACTIONS (2)
  - DEPRESSION [None]
  - MORBID THOUGHTS [None]
